FAERS Safety Report 9296032 (Version 2)
Quarter: 2013Q3

REPORT INFORMATION
  Report Type: Spontaneous
  Country: FR (occurrence: FR)
  Receive Date: 20130517
  Receipt Date: 20130712
  Transmission Date: 20140515
  Serious: Yes (Death, Life-Threatening, Other)
  Sender: FDA-Public Use
  Company Number: FR-ASTRAZENECA-2013SE33825

PATIENT
  Age: 19450 Day
  Sex: Female
  Weight: 72 kg

DRUGS (2)
  1. XEROQUEL [Suspect]
     Indication: BIPOLAR I DISORDER
     Route: 048
     Dates: start: 20120413
  2. TERALITHE [Suspect]
     Indication: BIPOLAR DISORDER
     Route: 048
     Dates: start: 2008

REACTIONS (3)
  - Completed suicide [Fatal]
  - Suicidal ideation [Unknown]
  - Drug ineffective [Not Recovered/Not Resolved]
